FAERS Safety Report 24422985 (Version 1)
Quarter: 2024Q4

REPORT INFORMATION
  Report Type: Spontaneous
  Country: ES (occurrence: ES)
  Receive Date: 20241010
  Receipt Date: 20241010
  Transmission Date: 20250115
  Serious: Yes (Hospitalization)
  Sender: RANBAXY
  Company Number: ES-AEMPS-1557690

PATIENT
  Age: 84 Year
  Sex: Male

DRUGS (2)
  1. ERTAPENEM [Suspect]
     Active Substance: ERTAPENEM
     Indication: Pyelonephritis acute
     Dosage: 1 GRAM, QD
     Route: 040
     Dates: start: 20240122, end: 20240129
  2. LACTULOSE LAINCO [Concomitant]
     Indication: Constipation
     Dosage: 10 GRAM, BID
     Route: 048
     Dates: start: 20240126, end: 20240129

REACTIONS (2)
  - Clostridial sepsis [Recovered/Resolved]
  - Clostridium difficile colitis [Recovered/Resolved]

NARRATIVE: CASE EVENT DATE: 20240129
